FAERS Safety Report 7250308-X (Version None)
Quarter: 2011Q1

REPORT INFORMATION
  Report Type: 
  Country: None (occurrence: None)
  Receive Date: 20110128
  Receipt Date: 20110119
  Transmission Date: 20110831
  Serious: Yes (Hospitalization)
  Sender: FDA-Public Use
  Company Number: FR-AMGEN-US399728

PATIENT
  Age: 39 Year
  Sex: Male

DRUGS (5)
  1. OMEPRAZOLE [Concomitant]
  2. ENBREL [Suspect]
     Indication: ANKYLOSING SPONDYLITIS
     Dosage: 50 MG, QWK
     Route: 058
     Dates: start: 20091127, end: 20100120
  3. ENBREL [Suspect]
     Dosage: 50 MG, QWK
     Route: 058
     Dates: start: 20100126, end: 20100206
  4. KETAZOLAM [Concomitant]
  5. ACETAMINOPHEN W/ PROPOXYPHENE HCL [Concomitant]

REACTIONS (4)
  - HEPATITIS A [None]
  - PROTHROMBIN TIME PROLONGED [None]
  - DELUSION [None]
  - NASOPHARYNGITIS [None]
